FAERS Safety Report 24051542 (Version 2)
Quarter: 2024Q4

REPORT INFORMATION
  Report Type: Spontaneous
  Country: US (occurrence: US)
  Receive Date: 20240704
  Receipt Date: 20241008
  Transmission Date: 20250115
  Serious: No
  Sender: PFIZER
  Company Number: US-PFIZER INC-202400205596

PATIENT
  Age: 38 Year
  Sex: Female
  Weight: 64.41 kg

DRUGS (2)
  1. OXBRYTA [Suspect]
     Active Substance: VOXELOTOR
     Indication: Sickle cell disease
     Dosage: UNK
     Dates: start: 2019
  2. OXBRYTA [Suspect]
     Active Substance: VOXELOTOR
     Dosage: 1500 MG, (3 TABLETS 500MG, ONCE DAILY)
     Route: 048
     Dates: start: 20200228

REACTIONS (2)
  - Malaise [Unknown]
  - Recalled product administered [Unknown]
